FAERS Safety Report 7066382-X (Version None)
Quarter: 2010Q4

REPORT INFORMATION
  Report Type: 
  Country: None (occurrence: None)
  Receive Date: 20101027
  Receipt Date: 20091216
  Transmission Date: 20110411
  Serious: No
  Sender: FDA-Public Use
  Company Number: US-WYE-H12656909

PATIENT
  Sex: Female
  Weight: 72.64 kg

DRUGS (1)
  1. PREMPRO [Suspect]
     Indication: HOT FLUSH
     Route: 048
     Dates: start: 20090701

REACTIONS (2)
  - DRUG INEFFECTIVE [None]
  - PRODUCT QUALITY ISSUE [None]
